FAERS Safety Report 6352939-8 (Version None)
Quarter: 2009Q3

REPORT INFORMATION
  Report Type: 
  Country: None (occurrence: None)
  Receive Date: 20090912
  Receipt Date: 20090622
  Transmission Date: 20100115
  Serious: No
  Sender: FDA-Public Use
  Company Number: US-ABBOTT-08P-163-0450066-00

PATIENT
  Sex: Female
  Weight: 62.198 kg

DRUGS (11)
  1. HUMIRA [Suspect]
     Indication: DRUG USE FOR UNKNOWN INDICATION
     Route: 058
     Dates: start: 20071101
  2. HUMIRA [Suspect]
     Route: 058
     Dates: start: 20071001, end: 20071001
  3. HUMIRA [Suspect]
     Route: 058
     Dates: start: 20071101, end: 20071101
  4. MESALAZINE [Concomitant]
     Indication: CROHN'S DISEASE
  5. METOPROLOL SUCCINATE [Concomitant]
     Indication: TACHYCARDIA
  6. IMURAN [Concomitant]
     Indication: CROHN'S DISEASE
  7. PENTOSAN POLYSULFATE SODIUM [Concomitant]
     Indication: CYSTITIS INTERSTITIAL
  8. ESOMEPRAZOLE MAGNESIUM [Concomitant]
     Indication: GASTROOESOPHAGEAL REFLUX DISEASE
  9. FEXOFENADINE [Concomitant]
     Indication: HYPERSENSITIVITY
     Dosage: 180 MG, DAILY
  10. MONTELUKAST SODIUM [Concomitant]
     Indication: HYPERSENSITIVITY
     Dosage: 10 MG, DAILY
  11. DULOXETINE HYDROCHLORIDE [Concomitant]
     Indication: DEPRESSION
     Dosage: 60 MG, DAILY

REACTIONS (1)
  - INCORRECT DOSE ADMINISTERED [None]
